FAERS Safety Report 15869697 (Version 1)
Quarter: 2019Q1

REPORT INFORMATION
  Report Type: Spontaneous
  Country: CA (occurrence: CA)
  Receive Date: 20190125
  Receipt Date: 20190125
  Transmission Date: 20190417
  Serious: Yes (Hospitalization, Other)
  Sender: FDA-Public Use
  Company Number: CA-MYLANLABS-2019M1006007

PATIENT
  Age: 73 Year
  Sex: Male

DRUGS (10)
  1. WARFARIN [Interacting]
     Active Substance: WARFARIN
     Dosage: 16 MILLIGRAM, QD
     Route: 065
  2. WARFARIN [Interacting]
     Active Substance: WARFARIN
     Dosage: 10 MILLIGRAM, QD
     Route: 065
  3. RIFAMPICIN [Suspect]
     Active Substance: RIFAMPIN
     Indication: ARTHRITIS INFECTIVE
     Route: 065
  4. WARFARIN [Interacting]
     Active Substance: WARFARIN
     Dosage: 5 MILLIGRAM, QD
     Route: 065
  5. WARFARIN [Interacting]
     Active Substance: WARFARIN
     Dosage: 3 MILLIGRAM, QD
     Route: 065
  6. WARFARIN [Interacting]
     Active Substance: WARFARIN
     Dosage: 15 MILLIGRAM, QD
     Route: 065
  7. WARFARIN [Interacting]
     Active Substance: WARFARIN
     Indication: ATRIAL FIBRILLATION
     Dosage: 4 MILLIGRAM, QD
     Route: 065
  8. WARFARIN [Interacting]
     Active Substance: WARFARIN
     Dosage: 4.5 MILLIGRAM, QD
     Route: 065
  9. WARFARIN [Interacting]
     Active Substance: WARFARIN
     Dosage: 7.5 MILLIGRAM, QD
     Route: 065
  10. SEPTRA [Interacting]
     Active Substance: SULFAMETHOXAZOLE\TRIMETHOPRIM
     Indication: DIARRHOEA
     Dosage: RECEIVED 3 DOSES
     Route: 065

REACTIONS (3)
  - Anticoagulation drug level below therapeutic [Recovered/Resolved]
  - Anticoagulation drug level above therapeutic [Unknown]
  - Labelled drug-drug interaction medication error [Recovered/Resolved]
